FAERS Safety Report 8056135-8 (Version None)
Quarter: 2012Q1

REPORT INFORMATION
  Report Type: 
  Country: None (occurrence: None)
  Receive Date: 20120119
  Receipt Date: 20120113
  Transmission Date: 20120608
  Serious: No
  Sender: FDA-Public Use
  Company Number: US-PFIZER INC-2012012793

PATIENT

DRUGS (9)
  1. SIMVASTATIN [Suspect]
     Dosage: UNK
  2. MAXZIDE [Concomitant]
     Dosage: UNK
  3. PRILOSEC [Concomitant]
     Dosage: UNK
  4. LIPITOR [Suspect]
     Dosage: UNK
  5. RAMIPRIL [Concomitant]
     Dosage: UNK
  6. TRAZODONE [Concomitant]
     Dosage: UNK
  7. AMLODIPINE [Concomitant]
     Dosage: UNK
  8. PRAVASTATIN [Concomitant]
     Dosage: UNK
  9. OXYCODONE [Concomitant]
     Dosage: UNK

REACTIONS (1)
  - DRUG HYPERSENSITIVITY [None]
